FAERS Safety Report 6752440-3 (Version None)
Quarter: 2010Q2

REPORT INFORMATION
  Report Type: 
  Country: None (occurrence: None)
  Receive Date: 20100602
  Receipt Date: 20100521
  Transmission Date: 20101027
  Serious: Yes (Hospitalization)
  Sender: FDA-Public Use
  Company Number: US-ELI_LILLY_AND_COMPANY-US201002005569

PATIENT
  Sex: Female

DRUGS (4)
  1. ADCIRCA [Suspect]
     Indication: PULMONARY ARTERIAL HYPERTENSION
     Dosage: 20 MG, UNK
     Dates: start: 20100213, end: 20100224
  2. ADCIRCA [Suspect]
     Dosage: 10 MG, UNK
     Dates: start: 20100224
  3. DIURETICS [Concomitant]
  4. TRACLEER [Concomitant]

REACTIONS (4)
  - FATIGUE [None]
  - HEPATIC ENZYME INCREASED [None]
  - HYPOTENSION [None]
  - RASH [None]
